FAERS Safety Report 8420508-1 (Version None)
Quarter: 2012Q2

REPORT INFORMATION
  Report Type: 
  Country: None (occurrence: None)
  Receive Date: 20120608
  Receipt Date: 20120601
  Transmission Date: 20120825
  Serious: Yes (Hospitalization, Other)
  Sender: FDA-Public Use
  Company Number: FR-BIOGENIDEC-2010BI042140

PATIENT
  Age: 47 Year
  Sex: Male

DRUGS (5)
  1. CLONAZEPAM [Concomitant]
  2. ALFUZOSIN HCL [Concomitant]
  3. LYRICA [Concomitant]
  4. ZOLOFT [Concomitant]
  5. TYSABRI [Suspect]
     Indication: MULTIPLE SCLEROSIS
     Route: 042
     Dates: start: 20081029, end: 20100501

REACTIONS (1)
  - NECROTISING RETINITIS [None]
